FAERS Safety Report 11291644 (Version 1)
Quarter: 2015Q3

REPORT INFORMATION
  Report Type: Spontaneous
  Country: US (occurrence: None)
  Receive Date: 20150721
  Receipt Date: 20150721
  Transmission Date: 20151125
  Serious: Yes (Disabling)
  Sender: FDA-Public Use
  Company Number: None

PATIENT
  Age: 89 Year
  Sex: Female
  Weight: 57.61 kg

DRUGS (7)
  1. IBUPROFEN. [Concomitant]
     Active Substance: IBUPROFEN
  2. TRAVATAN EYE DROPS [Concomitant]
  3. CLONAZEPAM 0.5 MG - GENERIC FOR KLONOPIN 0.5 MG DICARD 12/10/15 (MFG TEVA USA) [Suspect]
     Active Substance: CLONAZEPAM
     Indication: ANXIETY
     Route: 048
     Dates: start: 20141218, end: 20141222
  4. PROPRANOLOL [Concomitant]
     Active Substance: PROPRANOLOL\PROPRANOLOL HYDROCHLORIDE
  5. TRAMADOL EYE DROPS [Concomitant]
  6. EYE DROPS [Concomitant]
     Active Substance: TETRAHYDROZOLINE HYDROCHLORIDE
  7. RESTASIS [Concomitant]
     Active Substance: CYCLOSPORINE

REACTIONS (9)
  - Impaired driving ability [None]
  - Blood pressure decreased [None]
  - Balance disorder [None]
  - Malaise [None]
  - Trismus [None]
  - Dizziness [None]
  - Nausea [None]
  - Vomiting [None]
  - Coordination abnormal [None]

NARRATIVE: CASE EVENT DATE: 20141218
